FAERS Safety Report 8014191 (Version 3)
Quarter: 2012Q4

REPORT INFORMATION
  Report Type: 
  Country: US (occurrence: US)
  Receive Date: 20110629
  Receipt Date: 20120914
  Transmission Date: 20130627
  Serious: No
  Sender: FDA-Public Use
  Company Number: US-BAYER-2011-052244

PATIENT
  Age: 19 Year
  Sex: Female
  Weight: 75.28 kg

DRUGS (2)
  1. MIRENA [Suspect]
     Dosage: 20 mcg/24hr, UNK
     Dates: start: 20081027
  2. PRENATAL VITAMINS [Concomitant]

REACTIONS (2)
  - Pregnancy with contraceptive device [None]
  - Device expulsion [None]
